FAERS Safety Report 5676847-0 (Version None)
Quarter: 2008Q1

REPORT INFORMATION
  Report Type: 
  Country: None (occurrence: None)
  Receive Date: 20080324
  Receipt Date: 20080310
  Transmission Date: 20080703
  Serious: Yes (Death, Other)
  Sender: FDA-Public Use
  Company Number: GB-RANBAXY-2007RR-07305

PATIENT

DRUGS (5)
  1. FLUOXETINE [Suspect]
     Indication: DEPRESSION
     Dosage: 40 MG, UNK
     Route: 048
     Dates: start: 20050511, end: 20050519
  2. ADCAL [Concomitant]
     Dosage: 1.5 G, BID
     Route: 048
  3. ASPIRIN [Concomitant]
     Dosage: 75 MG, UNK
     Route: 048
  4. SENNA [Concomitant]
     Dosage: 15 MG, UNK
     Route: 048
  5. VALPROATE SODIUM [Concomitant]
     Indication: CONVULSION
     Dosage: 200 MG, BID
     Route: 048
     Dates: end: 20050519

REACTIONS (1)
  - CHOREA [None]
